FAERS Safety Report 7139093-X (Version None)
Quarter: 2010Q4

REPORT INFORMATION
  Report Type: 
  Country: None (occurrence: None)
  Receive Date: 20101206
  Receipt Date: 20101124
  Transmission Date: 20110411
  Serious: Yes (Hospitalization)
  Sender: FDA-Public Use
  Company Number: B0685893A

PATIENT
  Age: 56 Year
  Sex: Male

DRUGS (9)
  1. ZOPHREN [Suspect]
     Route: 065
  2. FLUOROURACIL [Suspect]
     Dosage: 8000MG CUMULATIVE DOSE
     Route: 065
     Dates: start: 20100823, end: 20100801
  3. CISPLATIN [Suspect]
     Dosage: 200MG PER DAY
     Route: 065
     Dates: start: 20100823, end: 20100823
  4. ERBITUX [Suspect]
     Dosage: 800MG PER DAY
     Route: 065
     Dates: start: 20100823, end: 20100823
  5. EMEND [Suspect]
     Route: 065
  6. SOLU-MEDROL [Suspect]
     Route: 065
  7. POLARAMINE [Suspect]
     Route: 065
  8. AERIUS [Suspect]
     Route: 065
  9. PRIMPERAN [Suspect]
     Route: 065

REACTIONS (2)
  - HEPATITIS ACUTE [None]
  - THROMBOCYTOPENIA [None]
